FAERS Safety Report 24131552 (Version 1)
Quarter: 2024Q3

REPORT INFORMATION
  Report Type: Spontaneous
  Country: US (occurrence: None)
  Receive Date: 20240723
  Receipt Date: 20240723
  Transmission Date: 20241016
  Serious: Yes (Other)
  Sender: Public
  Company Number: None

PATIENT
  Age: 51 Year
  Sex: Male
  Weight: 90 kg

DRUGS (1)
  1. TESTOSTERONE [Suspect]
     Active Substance: TESTOSTERONE
     Dates: start: 20240708

REACTIONS (5)
  - Dizziness [None]
  - Disorientation [None]
  - Brain fog [None]
  - Pain [None]
  - Injection site bruising [None]

NARRATIVE: CASE EVENT DATE: 20240708
